FAERS Safety Report 25270363 (Version 3)
Quarter: 2025Q3

REPORT INFORMATION
  Report Type: Spontaneous
  Country: US (occurrence: US)
  Receive Date: 20250505
  Receipt Date: 20250702
  Transmission Date: 20251021
  Serious: Yes (Other)
  Sender: PFIZER
  Company Number: US-PFIZER INC-202500092385

PATIENT
  Age: 76 Year
  Sex: Female
  Weight: 72.35 kg

DRUGS (1)
  1. NURTEC ODT [Suspect]
     Active Substance: RIMEGEPANT SULFATE
     Indication: Migraine
     Route: 048
     Dates: start: 202504

REACTIONS (5)
  - Cataract [Unknown]
  - Memory impairment [Unknown]
  - Drug ineffective [Unknown]
  - Poor quality product administered [Unknown]
  - Product physical consistency issue [Unknown]
